FAERS Safety Report 19469278 (Version 1)
Quarter: 2021Q2

REPORT INFORMATION
  Report Type: Spontaneous
  Country: US (occurrence: US)
  Receive Date: 20210628
  Receipt Date: 20210628
  Transmission Date: 20210717
  Serious: Yes (Hospitalization)
  Sender: FDA-Public Use
  Company Number: US-PFIZER INC-2021741625

PATIENT
  Age: 21 Year
  Sex: Male

DRUGS (4)
  1. XELJANZ [Suspect]
     Active Substance: TOFACITINIB CITRATE
     Dosage: 10 ML, 2X/DAY (FOR 16 WEEKS; THEN TAKE 5 ML BY MOUTH TWICE A DAY THEREAFTER)
     Route: 048
     Dates: start: 202103
  2. IRON [Concomitant]
     Active Substance: IRON
  3. MULTIVITAMIN (16) [Concomitant]
     Active Substance: VITAMINS
  4. PROBIOTICS [Concomitant]
     Active Substance: PROBIOTICS NOS

REACTIONS (4)
  - Drug ineffective [Unknown]
  - Hypovolaemia [Unknown]
  - Syncope [Unknown]
  - Haemorrhage [Unknown]
